FAERS Safety Report 23558877 (Version 1)
Quarter: 2024Q1

REPORT INFORMATION
  Report Type: Report from Study
  Country: US (occurrence: US)
  Receive Date: 20240223
  Receipt Date: 20240223
  Transmission Date: 20240410
  Serious: Yes (Death, Hospitalization, Other)
  Sender: FDA-Public Use
  Company Number: US-002147023-NVSC2023US056168

PATIENT
  Age: 55 Year
  Sex: Female
  Weight: 40.816 kg

DRUGS (2)
  1. TREPROSTINIL [Suspect]
     Active Substance: TREPROSTINIL
     Dosage: 256 NG/KG/MIN, CONT
     Route: 042
     Dates: start: 20230517
  2. TREPROSTINIL [Suspect]
     Active Substance: TREPROSTINIL
     Indication: Pulmonary arterial hypertension
     Dosage: 181 NG/KG/MIN, CONT
     Route: 042
     Dates: start: 202208

REACTIONS (4)
  - Death [Fatal]
  - Hospitalisation [Unknown]
  - Pulmonary arterial hypertension [Not Recovered/Not Resolved]
  - Condition aggravated [Unknown]

NARRATIVE: CASE EVENT DATE: 20240120
